FAERS Safety Report 7900668-9 (Version None)
Quarter: 2011Q4

REPORT INFORMATION
  Report Type: 
  Country: None (occurrence: None)
  Receive Date: 20111108
  Receipt Date: 20111102
  Transmission Date: 20120403
  Serious: Yes (Other)
  Sender: FDA-Public Use
  Company Number: CA-BRISTOL-MYERS SQUIBB COMPANY-16077638

PATIENT
  Age: 30 Year
  Sex: Male

DRUGS (6)
  1. RISPERIDONE [Concomitant]
  2. LITHIUM CITRATE [Suspect]
  3. ZYPREXA [Suspect]
  4. HALDOL [Concomitant]
  5. ABILIFY [Suspect]
     Route: 048
  6. RISPERDAL CONSTA [Suspect]
     Route: 030

REACTIONS (4)
  - IRRITABILITY [None]
  - ANXIETY [None]
  - PSYCHOTIC DISORDER [None]
  - AGITATION [None]
